FAERS Safety Report 13046703 (Version 1)
Quarter: 2016Q4

REPORT INFORMATION
  Report Type: Report from Study
  Country: US (occurrence: US)
  Receive Date: 20161220
  Receipt Date: 20161220
  Transmission Date: 20170207
  Serious: No
  Sender: FDA-Public Use
  Company Number: PHEH2016US032699

PATIENT
  Age: 17 Year
  Sex: Female

DRUGS (1)
  1. ILARIS [Suspect]
     Active Substance: CANAKINUMAB
     Indication: JUVENILE IDIOPATHIC ARTHRITIS
     Route: 065

REACTIONS (5)
  - Vomiting [Unknown]
  - Pyrexia [Unknown]
  - Diarrhoea [Unknown]
  - Inappropriate schedule of drug administration [Unknown]
  - Malaise [Unknown]

NARRATIVE: CASE EVENT DATE: 20161210
